FAERS Safety Report 22639742 (Version 2)
Quarter: 2025Q2

REPORT INFORMATION
  Report Type: Spontaneous
  Country: ES (occurrence: ES)
  Receive Date: 20230626
  Receipt Date: 20250626
  Transmission Date: 20250717
  Serious: Yes (Hospitalization, Other)
  Sender: MYLAN
  Company Number: None

PATIENT
  Age: 34 Year
  Sex: Male

DRUGS (20)
  1. ACETAMINOPHEN [Interacting]
     Active Substance: ACETAMINOPHEN
     Indication: Product used for unknown indication
     Dates: start: 20230603, end: 20230603
  2. ACETAMINOPHEN [Interacting]
     Active Substance: ACETAMINOPHEN
     Route: 048
     Dates: start: 20230603, end: 20230603
  3. ACETAMINOPHEN [Interacting]
     Active Substance: ACETAMINOPHEN
     Route: 048
     Dates: start: 20230603, end: 20230603
  4. ACETAMINOPHEN [Interacting]
     Active Substance: ACETAMINOPHEN
     Dates: start: 20230603, end: 20230603
  5. OMEPRAZOLE [Interacting]
     Active Substance: OMEPRAZOLE
     Indication: Product used for unknown indication
     Dates: start: 20230603, end: 20230603
  6. OMEPRAZOLE [Interacting]
     Active Substance: OMEPRAZOLE
     Route: 048
     Dates: start: 20230603, end: 20230603
  7. OMEPRAZOLE [Interacting]
     Active Substance: OMEPRAZOLE
     Route: 048
     Dates: start: 20230603, end: 20230603
  8. OMEPRAZOLE [Interacting]
     Active Substance: OMEPRAZOLE
     Dates: start: 20230603, end: 20230603
  9. ALMAGATE [Interacting]
     Active Substance: ALMAGATE
     Indication: Product used for unknown indication
     Dates: start: 20230603, end: 20230603
  10. ALMAGATE [Interacting]
     Active Substance: ALMAGATE
     Route: 048
     Dates: start: 20230603, end: 20230603
  11. ALMAGATE [Interacting]
     Active Substance: ALMAGATE
     Route: 048
     Dates: start: 20230603, end: 20230603
  12. ALMAGATE [Interacting]
     Active Substance: ALMAGATE
     Dates: start: 20230603, end: 20230603
  13. JANUMET [Interacting]
     Active Substance: METFORMIN HYDROCHLORIDE\SITAGLIPTIN PHOSPHATE
     Indication: Product used for unknown indication
     Dates: start: 20230603, end: 20230603
  14. JANUMET [Interacting]
     Active Substance: METFORMIN HYDROCHLORIDE\SITAGLIPTIN PHOSPHATE
     Route: 048
     Dates: start: 20230603, end: 20230603
  15. JANUMET [Interacting]
     Active Substance: METFORMIN HYDROCHLORIDE\SITAGLIPTIN PHOSPHATE
     Route: 048
     Dates: start: 20230603, end: 20230603
  16. JANUMET [Interacting]
     Active Substance: METFORMIN HYDROCHLORIDE\SITAGLIPTIN PHOSPHATE
     Dates: start: 20230603, end: 20230603
  17. AMOXICILLIN [Interacting]
     Active Substance: AMOXICILLIN
     Indication: Product used for unknown indication
     Dates: start: 20230603, end: 20230603
  18. AMOXICILLIN [Interacting]
     Active Substance: AMOXICILLIN
     Route: 048
     Dates: start: 20230603, end: 20230603
  19. AMOXICILLIN [Interacting]
     Active Substance: AMOXICILLIN
     Route: 048
     Dates: start: 20230603, end: 20230603
  20. AMOXICILLIN [Interacting]
     Active Substance: AMOXICILLIN
     Dates: start: 20230603, end: 20230603

REACTIONS (5)
  - Hyperlactacidaemia [Recovered/Resolved]
  - Acute kidney injury [Recovered/Resolved]
  - Suicide attempt [Unknown]
  - Intentional overdose [Recovered/Resolved]
  - Drug interaction [Unknown]

NARRATIVE: CASE EVENT DATE: 20230603
